FAERS Safety Report 14151790 (Version 1)
Quarter: 2017Q4

REPORT INFORMATION
  Report Type: Spontaneous
  Country: US (occurrence: US)
  Receive Date: 20171102
  Receipt Date: 20171102
  Transmission Date: 20180321
  Serious: Yes (Other)
  Sender: FDA-Public Use
  Company Number: US-ASTRAZENECA-2017SF10800

PATIENT
  Sex: Female

DRUGS (1)
  1. PULMICORT FLEXHALER [Suspect]
     Active Substance: BUDESONIDE
     Dosage: UNKNOWN
     Route: 055

REACTIONS (4)
  - Circumstance or information capable of leading to medication error [Unknown]
  - Deafness [Unknown]
  - Arthritis [Unknown]
  - Device failure [Unknown]
